FAERS Safety Report 17862997 (Version 1)
Quarter: 2020Q2

REPORT INFORMATION
  Report Type: Spontaneous
  Country: US (occurrence: US)
  Receive Date: 20200604
  Receipt Date: 20200604
  Transmission Date: 20200714
  Serious: No
  Sender: FDA-Public Use
  Company Number: US-FOUNDATIONCONSUMERHC-2020-US-008392

PATIENT
  Age: 28 Year
  Sex: Female
  Weight: 80.74 kg

DRUGS (2)
  1. WOMEN^S ONE A DAY VITAMIN [Concomitant]
  2. PLAN B ONE-STEP [Suspect]
     Active Substance: LEVONORGESTREL
     Indication: POST COITAL CONTRACEPTION
     Dosage: 1.5 MG X 2 DOSES
     Route: 048
     Dates: start: 20200404, end: 20200404

REACTIONS (6)
  - Dysmenorrhoea [Recovered/Resolved]
  - Incorrect dosage administered [Recovered/Resolved]
  - Menstruation delayed [Not Recovered/Not Resolved]
  - Intentional product misuse [Recovered/Resolved]
  - Vomiting [Recovered/Resolved]
  - Vaginal haemorrhage [Recovered/Resolved]

NARRATIVE: CASE EVENT DATE: 20200404
